FAERS Safety Report 18033726 (Version 1)
Quarter: 2020Q3

REPORT INFORMATION
  Report Type: Spontaneous
  Country: GB (occurrence: GB)
  Receive Date: 20200716
  Receipt Date: 20200716
  Transmission Date: 20201103
  Serious: Yes (Hospitalization)
  Sender: FDA-Public Use
  Company Number: GB-MYLANLABS-2020M1063654

PATIENT
  Age: 81 Year
  Sex: Female

DRUGS (5)
  1. SALAMOL                            /00139502/ [Concomitant]
     Dosage: 100 MICROGRAM, PRN
     Route: 055
  2. COCODAMOL [Concomitant]
     Active Substance: ACETAMINOPHEN\CODEINE PHOSPHATE
     Dosage: UNK UNK, PRN ONE OR TWO, FOUR TIMES A DAY, 8MG/500MG
     Route: 048
  3. CORSODYL [Concomitant]
     Active Substance: CHLORHEXIDINE GLUCONATE
     Dosage: 20 MILLILITER, QD
     Route: 050
  4. OMEPRAZOLE. [Suspect]
     Active Substance: OMEPRAZOLE
     Indication: PRODUCT USED FOR UNKNOWN INDICATION
     Dosage: IN MORNING
     Route: 048
     Dates: end: 20200615
  5. INDACATEROL [Concomitant]
     Active Substance: INDACATEROL
     Dosage: 150 MICROGRAM, QD IN MORNING
     Route: 055

REACTIONS (2)
  - Hyponatraemia [Recovered/Resolved]
  - Seizure [Recovered/Resolved]

NARRATIVE: CASE EVENT DATE: 20200615
